FAERS Safety Report 6255924-X (Version None)
Quarter: 2009Q3

REPORT INFORMATION
  Report Type: 
  Country: None (occurrence: None)
  Receive Date: 20090705
  Receipt Date: 20090701
  Transmission Date: 20100115
  Serious: Yes (Other)
  Sender: FDA-Public Use
  Company Number: CH-ALLERGAN-0908190US

PATIENT
  Sex: Female

DRUGS (1)
  1. BOTOX LYOPHILISAT [Suspect]
     Indication: HYPERHIDROSIS
     Dosage: 100 UNITS, SINGLE
     Route: 023
     Dates: start: 20090610, end: 20090610

REACTIONS (2)
  - MUSCULAR WEAKNESS [None]
  - SENSORY LOSS [None]
